FAERS Safety Report 6997931-5 (Version None)
Quarter: 2010Q3

REPORT INFORMATION
  Report Type: 
  Country: None (occurrence: None)
  Receive Date: 20100920
  Receipt Date: 20100909
  Transmission Date: 20110219
  Serious: Yes (Death, Hospitalization, Other)
  Sender: FDA-Public Use
  Company Number: BR-BAYER-201018768LA

PATIENT
  Age: 58 Year
  Sex: Female

DRUGS (2)
  1. BETAFERON [Suspect]
     Indication: MULTIPLE SCLEROSIS
     Dosage: BETAJECT
     Route: 058
     Dates: start: 20020101, end: 20100109
  2. AMITRIPTYLINE HCL [Concomitant]
     Indication: PROPHYLAXIS
     Route: 048

REACTIONS (4)
  - ABDOMINAL DISTENSION [None]
  - ABDOMINAL MASS [None]
  - DYSPNOEA [None]
  - NEUROENDOCRINE CARCINOMA [None]
